FAERS Safety Report 17005404 (Version 1)
Quarter: 2019Q4

REPORT INFORMATION
  Report Type: Spontaneous
  Country: US (occurrence: US)
  Receive Date: 20191106
  Receipt Date: 20191106
  Transmission Date: 20200122
  Serious: Yes (Disabling)
  Sender: FDA-Public Use
  Company Number: None

PATIENT
  Age: 41 Year
  Sex: Female
  Weight: 80.29 kg

DRUGS (3)
  1. FISH OIL [Concomitant]
     Active Substance: FISH OIL
  2. MIRENA [Suspect]
     Active Substance: LEVONORGESTREL
  3. DAILY MULTIVITAMIN [Concomitant]
     Active Substance: VITAMINS

REACTIONS (15)
  - Blood oestrogen abnormal [None]
  - Complication of device insertion [None]
  - Wrong device used [None]
  - Obesity [None]
  - Pain [None]
  - Mood swings [None]
  - Progesterone abnormal [None]
  - Weight increased [None]
  - Breast enlargement [None]
  - Anxiety [None]
  - Emotional disorder [None]
  - Oedema peripheral [None]
  - Hypomenorrhoea [None]
  - Chloasma [None]
  - Hormone level abnormal [None]

NARRATIVE: CASE EVENT DATE: 20181025
